FAERS Safety Report 17967917 (Version 3)
Quarter: 2020Q3

REPORT INFORMATION
  Report Type: Spontaneous
  Country: DE (occurrence: DE)
  Receive Date: 20200701
  Receipt Date: 20200811
  Transmission Date: 20201103
  Serious: Yes (Other)
  Sender: FDA-Public Use
  Company Number: DE-MYLANLABS-2020M1058961

PATIENT
  Sex: Male

DRUGS (5)
  1. BUPRENORPHINE. [Interacting]
     Active Substance: BUPRENORPHINE
     Dosage: 10 MILLIGRAM, QD
     Route: 065
  2. CANNABIS [Interacting]
     Active Substance: CANNABIS SATIVA SUBSP. INDICA TOP
     Indication: PRODUCT USED FOR UNKNOWN INDICATION
     Dosage: UNK
     Route: 065
  3. BUPRENORPHINE. [Interacting]
     Active Substance: BUPRENORPHINE
     Dosage: INCREASED TO 12 MG DAILY
     Route: 065
  4. BUPRENORPHINE. [Suspect]
     Active Substance: BUPRENORPHINE
     Indication: DRUG WITHDRAWAL MAINTENANCE THERAPY
     Dosage: 7 MILLIGRAM, QD,  GRADUAL INCREASES IN BUPRENORPHINE DOSAGE FROM 7 TO 10 MG DAILY
     Route: 065
     Dates: start: 2012
  5. PREGABALIN. [Concomitant]
     Active Substance: PREGABALIN
     Indication: PRODUCT USED FOR UNKNOWN INDICATION
     Dosage: 300 MILLIGRAM, QD
     Route: 065

REACTIONS (9)
  - Mental disorder [Recovered/Resolved]
  - Drug interaction [Unknown]
  - Depression [Recovered/Resolved]
  - Agitation [Not Recovered/Not Resolved]
  - Insomnia [Recovered/Resolved]
  - Apathy [Recovered/Resolved]
  - Drug dependence [Not Recovered/Not Resolved]
  - Drug withdrawal syndrome [Recovered/Resolved]
  - Drug abuse [Recovered/Resolved]
